FAERS Safety Report 11543352 (Version 2)
Quarter: 2015Q4

REPORT INFORMATION
  Report Type: Report from Study
  Country: BR (occurrence: BR)
  Receive Date: 20150923
  Receipt Date: 20151015
  Transmission Date: 20160304
  Serious: Yes (Other)
  Sender: FDA-Public Use
  Company Number: PHHY2015BR113801

PATIENT
  Sex: Female
  Weight: 85 kg

DRUGS (1)
  1. DIOVAN HCT [Suspect]
     Active Substance: HYDROCHLOROTHIAZIDE\VALSARTAN
     Indication: HYPERTENSION
     Dosage: 1 DF, QD
     Route: 065
     Dates: end: 20150903

REACTIONS (7)
  - Drug effect increased [Unknown]
  - Fatigue [Unknown]
  - Blood pressure decreased [Unknown]
  - Muscular weakness [Unknown]
  - Cold sweat [Unknown]
  - Mobility decreased [Unknown]
  - Anaemia [Unknown]
